FAERS Safety Report 5777299-2 (Version None)
Quarter: 2008Q2

REPORT INFORMATION
  Report Type: 
  Country: None (occurrence: None)
  Receive Date: 20080618
  Receipt Date: 20080603
  Transmission Date: 20081010
  Serious: Yes (Other)
  Sender: FDA-Public Use
  Company Number: GB-AVENTIS-200815244GDDC

PATIENT
  Age: 53 Year
  Sex: Male

DRUGS (1)
  1. EUGLUCON [Suspect]
     Route: 048

REACTIONS (1)
  - CEREBRAL INFARCTION [None]
